FAERS Safety Report 12179765 (Version 1)
Quarter: 2016Q1

REPORT INFORMATION
  Report Type: Spontaneous
  Country: US (occurrence: None)
  Receive Date: 20160314
  Receipt Date: 20160314
  Transmission Date: 20160526
  Serious: Yes (Life-Threatening, Hospitalization)
  Sender: FDA-Public Use
  Company Number: None

PATIENT
  Age: 49 Year
  Sex: Female
  Weight: 67.13 kg

DRUGS (3)
  1. LEVOTHYROXIN [Concomitant]
     Active Substance: LEVOTHYROXINE
  2. SERTRALENE [Concomitant]
  3. NUBAIN [Suspect]
     Active Substance: NALBUPHINE HYDROCHLORIDE

REACTIONS (3)
  - Burning sensation [None]
  - Muscle rigidity [None]
  - Seizure [None]

NARRATIVE: CASE EVENT DATE: 20160302
